FAERS Safety Report 7430319-1 (Version None)
Quarter: 2011Q2

REPORT INFORMATION
  Report Type: 
  Country: None (occurrence: None)
  Receive Date: 20110421
  Receipt Date: 20110114
  Transmission Date: 20111010
  Serious: No
  Sender: FDA-Public Use
  Company Number: US-ASTRAZENECA-2005UW06245

PATIENT
  Age: 27084 Day
  Sex: Female
  Weight: 62.6 kg

DRUGS (4)
  1. TOPROL-XL [Suspect]
     Route: 048
  2. TOPROL-XL [Suspect]
     Indication: HYPERTENSION
     Route: 048
  3. TOPROL-XL [Suspect]
     Route: 048
  4. CARDIZEM [Concomitant]

REACTIONS (3)
  - COUGH [None]
  - INFLUENZA [None]
  - MALAISE [None]
